FAERS Safety Report 13891494 (Version 8)
Quarter: 2019Q2

REPORT INFORMATION
  Report Type: Spontaneous
  Country: US (occurrence: US)
  Receive Date: 20170822
  Receipt Date: 20190610
  Transmission Date: 20190711
  Serious: No
  Sender: FDA-Public Use
  Company Number: US-PFIZER INC-2017362160

PATIENT
  Age: 33 Year
  Sex: Female
  Weight: 54 kg

DRUGS (5)
  1. WELLBUTRIN [Concomitant]
     Active Substance: BUPROPION HYDROCHLORIDE
     Dosage: UNK
  2. TOPAMAC [Concomitant]
     Active Substance: TOPIRAMATE
     Dosage: UNK
  3. BUPROPION. [Concomitant]
     Active Substance: BUPROPION
     Indication: DEPRESSION
     Dosage: 75 MG, 1X/DAY
     Route: 048
  4. LYRICA [Suspect]
     Active Substance: PREGABALIN
     Indication: DEPRESSION
     Dosage: 200 MG, 2X/DAY
     Route: 048
     Dates: start: 201601, end: 20170816
  5. LYRICA [Suspect]
     Active Substance: PREGABALIN
     Indication: BORDERLINE PERSONALITY DISORDER

REACTIONS (8)
  - Malaise [Unknown]
  - Asthenia [Unknown]
  - Product use in unapproved indication [Unknown]
  - Nausea [Unknown]
  - Vomiting [Unknown]
  - Withdrawal syndrome [Unknown]
  - Pain [Unknown]
  - Off label use [Unknown]

NARRATIVE: CASE EVENT DATE: 201601
